FAERS Safety Report 7194194-5 (Version None)
Quarter: 2010Q4

REPORT INFORMATION
  Report Type: 
  Country: None (occurrence: None)
  Receive Date: 20101223
  Receipt Date: 20101209
  Transmission Date: 20110411
  Serious: Yes (Other)
  Sender: FDA-Public Use
  Company Number: JP-AMGEN-JPNCT2010007291

PATIENT

DRUGS (14)
  1. PANITUMUMAB [Suspect]
     Indication: COLORECTAL CANCER
     Dosage: 6 MG/KG, Q2WK
     Route: 041
     Dates: start: 20100722, end: 20101013
  2. IRINOTECAN HYDROCHLORIDE [Suspect]
     Indication: COLORECTAL CANCER
     Route: 041
     Dates: start: 20100722, end: 20101003
  3. ANTIHISTAMINES [Concomitant]
     Indication: PROPHYLAXIS
     Route: 065
  4. CORTICOSTEROIDS [Concomitant]
     Indication: PROPHYLAXIS
     Route: 065
  5. VENA                               /00000402/ [Concomitant]
     Route: 048
  6. GRANISETRON HCL [Concomitant]
     Route: 042
  7. DECADRON [Concomitant]
     Route: 042
  8. METHYCOBAL                         /00056201/ [Concomitant]
     Route: 048
  9. GASPORT [Concomitant]
     Route: 048
  10. MYSLEE [Concomitant]
     Route: 048
  11. MAGMITT [Concomitant]
     Route: 048
  12. GOSHAJINKIGAN [Concomitant]
     Route: 048
  13. BIOFERMIN [Concomitant]
     Route: 048
  14. LAXOBERON [Concomitant]
     Route: 048

REACTIONS (7)
  - DECREASED APPETITE [None]
  - DERMATITIS ACNEIFORM [None]
  - DIARRHOEA [None]
  - DRY SKIN [None]
  - HYPOAESTHESIA [None]
  - MALAISE [None]
  - PARONYCHIA [None]
